FAERS Safety Report 5023371-4 (Version None)
Quarter: 2006Q2

REPORT INFORMATION
  Report Type: 
  Country: None (occurrence: None)
  Receive Date: 20060501
  Receipt Date: 20050708
  Transmission Date: 20061013
  Serious: No
  Sender: FDA-Public Use
  Company Number: HQWYE163612JUL05

PATIENT
  Sex: 0

DRUGS (2)
  1. PROTONIX [Suspect]
     Dosage: SEE IMAGE
     Dates: end: 20050707
  2. PROTONIX [Suspect]
     Dosage: SEE IMAGE
     Dates: start: 20050708, end: 20050708

REACTIONS (2)
  - EXTRAVASATION [None]
  - INCORRECT ROUTE OF DRUG ADMINISTRATION [None]
